FAERS Safety Report 6539752-3 (Version None)
Quarter: 2010Q1

REPORT INFORMATION
  Report Type: 
  Country: None (occurrence: None)
  Receive Date: 20100115
  Receipt Date: 20100106
  Transmission Date: 20100710
  Serious: Yes (Hospitalization)
  Sender: FDA-Public Use
  Company Number: JP-ABBOTT-09P-087-0613514-00

PATIENT
  Age: 56 Year
  Sex: Female

DRUGS (2)
  1. HUMIRA [Suspect]
     Indication: PSORIASIS
     Route: 058
     Dates: start: 20060920, end: 20080310
  2. HUMIRA [Suspect]
     Route: 058
     Dates: start: 20080324

REACTIONS (2)
  - ANKLE FRACTURE [None]
  - JOINT DISLOCATION [None]
